FAERS Safety Report 21933976 (Version 3)
Quarter: 2023Q1

REPORT INFORMATION
  Report Type: Report from Study
  Country: FR (occurrence: FR)
  Receive Date: 20230201
  Receipt Date: 20230303
  Transmission Date: 20230418
  Serious: Yes (Hospitalization, Other)
  Sender: FDA-Public Use
  Company Number: FR-TAKEDA-2023TUS010031

PATIENT
  Age: 39 Year
  Sex: Female

DRUGS (104)
  1. TEDUGLUTIDE [Suspect]
     Active Substance: TEDUGLUTIDE
     Indication: Short-bowel syndrome
     Dosage: 2.6 MILLIGRAM, QD
     Route: 042
     Dates: start: 20160316, end: 20160516
  2. TEDUGLUTIDE [Suspect]
     Active Substance: TEDUGLUTIDE
     Indication: Short-bowel syndrome
     Dosage: 2.6 MILLIGRAM, QD
     Route: 042
     Dates: start: 20160316, end: 20160516
  3. TEDUGLUTIDE [Suspect]
     Active Substance: TEDUGLUTIDE
     Indication: Short-bowel syndrome
     Dosage: 2.6 MILLIGRAM, QD
     Route: 042
     Dates: start: 20160316, end: 20160516
  4. TEDUGLUTIDE [Suspect]
     Active Substance: TEDUGLUTIDE
     Indication: Short-bowel syndrome
     Dosage: 2.6 MILLIGRAM, QD
     Route: 042
     Dates: start: 20160316, end: 20160516
  5. TEDUGLUTIDE [Suspect]
     Active Substance: TEDUGLUTIDE
     Dosage: 2.4 MILLIGRAM, QD
     Route: 042
     Dates: start: 20160517, end: 20160616
  6. TEDUGLUTIDE [Suspect]
     Active Substance: TEDUGLUTIDE
     Dosage: 2.4 MILLIGRAM, QD
     Route: 042
     Dates: start: 20160517, end: 20160616
  7. TEDUGLUTIDE [Suspect]
     Active Substance: TEDUGLUTIDE
     Dosage: 2.4 MILLIGRAM, QD
     Route: 042
     Dates: start: 20160517, end: 20160616
  8. TEDUGLUTIDE [Suspect]
     Active Substance: TEDUGLUTIDE
     Dosage: 2.4 MILLIGRAM, QD
     Route: 042
     Dates: start: 20160517, end: 20160616
  9. TEDUGLUTIDE [Suspect]
     Active Substance: TEDUGLUTIDE
     Dosage: 2.6 MILLIGRAM, QD
     Route: 042
     Dates: start: 20160617, end: 20160816
  10. TEDUGLUTIDE [Suspect]
     Active Substance: TEDUGLUTIDE
     Dosage: 2.6 MILLIGRAM, QD
     Route: 042
     Dates: start: 20160617, end: 20160816
  11. TEDUGLUTIDE [Suspect]
     Active Substance: TEDUGLUTIDE
     Dosage: 2.6 MILLIGRAM, QD
     Route: 042
     Dates: start: 20160617, end: 20160816
  12. TEDUGLUTIDE [Suspect]
     Active Substance: TEDUGLUTIDE
     Dosage: 2.6 MILLIGRAM, QD
     Route: 042
     Dates: start: 20160617, end: 20160816
  13. TEDUGLUTIDE [Suspect]
     Active Substance: TEDUGLUTIDE
     Dosage: 2.4 MILLIGRAM, QD
     Route: 042
     Dates: start: 20160817, end: 20160906
  14. TEDUGLUTIDE [Suspect]
     Active Substance: TEDUGLUTIDE
     Dosage: 2.4 MILLIGRAM, QD
     Route: 042
     Dates: start: 20160817, end: 20160906
  15. TEDUGLUTIDE [Suspect]
     Active Substance: TEDUGLUTIDE
     Dosage: 2.4 MILLIGRAM, QD
     Route: 042
     Dates: start: 20160817, end: 20160906
  16. TEDUGLUTIDE [Suspect]
     Active Substance: TEDUGLUTIDE
     Dosage: 2.4 MILLIGRAM, QD
     Route: 042
     Dates: start: 20160817, end: 20160906
  17. TEDUGLUTIDE [Suspect]
     Active Substance: TEDUGLUTIDE
     Dosage: 2.2 MILLIGRAM, QD
     Route: 042
     Dates: start: 20160907, end: 20161109
  18. TEDUGLUTIDE [Suspect]
     Active Substance: TEDUGLUTIDE
     Dosage: 2.2 MILLIGRAM, QD
     Route: 042
     Dates: start: 20160907, end: 20161109
  19. TEDUGLUTIDE [Suspect]
     Active Substance: TEDUGLUTIDE
     Dosage: 2.2 MILLIGRAM, QD
     Route: 042
     Dates: start: 20160907, end: 20161109
  20. TEDUGLUTIDE [Suspect]
     Active Substance: TEDUGLUTIDE
     Dosage: 2.2 MILLIGRAM, QD
     Route: 042
     Dates: start: 20160907, end: 20161109
  21. TEDUGLUTIDE [Suspect]
     Active Substance: TEDUGLUTIDE
     Dosage: 2.3 MILLIGRAM, QD
     Route: 042
     Dates: start: 20161110, end: 20170321
  22. TEDUGLUTIDE [Suspect]
     Active Substance: TEDUGLUTIDE
     Dosage: 2.3 MILLIGRAM, QD
     Route: 042
     Dates: start: 20161110, end: 20170321
  23. TEDUGLUTIDE [Suspect]
     Active Substance: TEDUGLUTIDE
     Dosage: 2.3 MILLIGRAM, QD
     Route: 042
     Dates: start: 20161110, end: 20170321
  24. TEDUGLUTIDE [Suspect]
     Active Substance: TEDUGLUTIDE
     Dosage: 2.3 MILLIGRAM, QD
     Route: 042
     Dates: start: 20161110, end: 20170321
  25. TEDUGLUTIDE [Suspect]
     Active Substance: TEDUGLUTIDE
     Dosage: 2.27 MILLIGRAM, QD
     Route: 042
     Dates: start: 20170321, end: 20170512
  26. TEDUGLUTIDE [Suspect]
     Active Substance: TEDUGLUTIDE
     Dosage: 2.27 MILLIGRAM, QD
     Route: 042
     Dates: start: 20170321, end: 20170512
  27. TEDUGLUTIDE [Suspect]
     Active Substance: TEDUGLUTIDE
     Dosage: 2.27 MILLIGRAM, QD
     Route: 042
     Dates: start: 20170321, end: 20170512
  28. TEDUGLUTIDE [Suspect]
     Active Substance: TEDUGLUTIDE
     Dosage: 2.27 MILLIGRAM, QD
     Route: 042
     Dates: start: 20170321, end: 20170512
  29. TEDUGLUTIDE [Suspect]
     Active Substance: TEDUGLUTIDE
     Dosage: 1.95 MILLIGRAM, QD
     Route: 042
     Dates: start: 20170512, end: 20170619
  30. TEDUGLUTIDE [Suspect]
     Active Substance: TEDUGLUTIDE
     Dosage: 1.95 MILLIGRAM, QD
     Route: 042
     Dates: start: 20170512, end: 20170619
  31. TEDUGLUTIDE [Suspect]
     Active Substance: TEDUGLUTIDE
     Dosage: 1.95 MILLIGRAM, QD
     Route: 042
     Dates: start: 20170512, end: 20170619
  32. TEDUGLUTIDE [Suspect]
     Active Substance: TEDUGLUTIDE
     Dosage: 1.95 MILLIGRAM, QD
     Route: 042
     Dates: start: 20170512, end: 20170619
  33. TEDUGLUTIDE [Suspect]
     Active Substance: TEDUGLUTIDE
     Dosage: 2 MILLIGRAM, QD
     Route: 042
     Dates: start: 20170627, end: 20170822
  34. TEDUGLUTIDE [Suspect]
     Active Substance: TEDUGLUTIDE
     Dosage: 2 MILLIGRAM, QD
     Route: 042
     Dates: start: 20170627, end: 20170822
  35. TEDUGLUTIDE [Suspect]
     Active Substance: TEDUGLUTIDE
     Dosage: 2 MILLIGRAM, QD
     Route: 042
     Dates: start: 20170627, end: 20170822
  36. TEDUGLUTIDE [Suspect]
     Active Substance: TEDUGLUTIDE
     Dosage: 2 MILLIGRAM, QD
     Route: 042
     Dates: start: 20170627, end: 20170822
  37. TEDUGLUTIDE [Suspect]
     Active Substance: TEDUGLUTIDE
     Dosage: 2 MILLIGRAM, QD
     Route: 042
     Dates: start: 20170918, end: 20171013
  38. TEDUGLUTIDE [Suspect]
     Active Substance: TEDUGLUTIDE
     Dosage: 2 MILLIGRAM, QD
     Route: 042
     Dates: start: 20170918, end: 20171013
  39. TEDUGLUTIDE [Suspect]
     Active Substance: TEDUGLUTIDE
     Dosage: 2 MILLIGRAM, QD
     Route: 042
     Dates: start: 20170918, end: 20171013
  40. TEDUGLUTIDE [Suspect]
     Active Substance: TEDUGLUTIDE
     Dosage: 2 MILLIGRAM, QD
     Route: 042
     Dates: start: 20170918, end: 20171013
  41. TEDUGLUTIDE [Suspect]
     Active Substance: TEDUGLUTIDE
     Dosage: 2 MILLIGRAM, QD
     Route: 042
     Dates: start: 20171014, end: 201711
  42. TEDUGLUTIDE [Suspect]
     Active Substance: TEDUGLUTIDE
     Dosage: 2 MILLIGRAM, QD
     Route: 042
     Dates: start: 20171014, end: 201711
  43. TEDUGLUTIDE [Suspect]
     Active Substance: TEDUGLUTIDE
     Dosage: 2 MILLIGRAM, QD
     Route: 042
     Dates: start: 20171014, end: 201711
  44. TEDUGLUTIDE [Suspect]
     Active Substance: TEDUGLUTIDE
     Dosage: 2 MILLIGRAM, QD
     Route: 042
     Dates: start: 20171014, end: 201711
  45. TEDUGLUTIDE [Suspect]
     Active Substance: TEDUGLUTIDE
     Dosage: 2.2 MILLIGRAM, QD
     Route: 042
     Dates: start: 20181105, end: 20190822
  46. TEDUGLUTIDE [Suspect]
     Active Substance: TEDUGLUTIDE
     Dosage: 2.2 MILLIGRAM, QD
     Route: 042
     Dates: start: 20181105, end: 20190822
  47. TEDUGLUTIDE [Suspect]
     Active Substance: TEDUGLUTIDE
     Dosage: 2.2 MILLIGRAM, QD
     Route: 042
     Dates: start: 20181105, end: 20190822
  48. TEDUGLUTIDE [Suspect]
     Active Substance: TEDUGLUTIDE
     Dosage: 2.2 MILLIGRAM, QD
     Route: 042
     Dates: start: 20181105, end: 20190822
  49. MORPHINE [Concomitant]
     Active Substance: MORPHINE
     Indication: Pancreatitis acute
     Dosage: UNK
     Route: 065
     Dates: start: 20170319, end: 20170326
  50. MORPHINE [Concomitant]
     Active Substance: MORPHINE
     Indication: Abdominal pain
     Dosage: UNK
     Route: 042
     Dates: start: 20190803, end: 20190805
  51. MORPHINE [Concomitant]
     Active Substance: MORPHINE
     Indication: Pain
     Dosage: 10 MILLIGRAM
     Route: 042
     Dates: start: 20190823, end: 201908
  52. MORPHINE [Concomitant]
     Active Substance: MORPHINE
     Indication: Pain
     Dosage: UNK
     Route: 065
     Dates: start: 2020, end: 2020
  53. MORPHINE [Concomitant]
     Active Substance: MORPHINE
     Indication: Rheumatic disorder
     Dosage: UNK
     Route: 065
     Dates: start: 202010, end: 202010
  54. PANTOPRAZOLE [Concomitant]
     Active Substance: PANTOPRAZOLE
     Indication: Short-bowel syndrome
     Dosage: UNK
     Route: 065
  55. VITAMIN A [Concomitant]
     Active Substance: VITAMIN A
     Indication: Vitamin A deficiency
     Dosage: UNK
     Route: 065
  56. HYDROCORTISONE [Concomitant]
     Active Substance: HYDROCORTISONE
     Indication: Adrenal insufficiency
     Dosage: 10 MILLIGRAM, QD
     Route: 048
  57. IMODIUM [Concomitant]
     Active Substance: LOPERAMIDE HYDROCHLORIDE
     Indication: Diarrhoea
     Dosage: 2 MILLIGRAM
     Route: 048
  58. MOTILIUM [Concomitant]
     Active Substance: DOMPERIDONE
     Indication: Nausea
     Dosage: 10 MILLIGRAM
     Route: 048
  59. CHOLECALCIFEROL [Concomitant]
     Active Substance: CHOLECALCIFEROL
     Indication: Vitamin D deficiency
     Dosage: 200000 INTERNATIONAL UNIT
     Route: 048
  60. POTASSIUM CHLORIDE [Concomitant]
     Active Substance: POTASSIUM CHLORIDE
     Indication: Hypokalaemia
     Dosage: 3 DOSAGE FORM, TID
     Route: 048
  61. GABAPENTIN [Concomitant]
     Active Substance: GABAPENTIN
     Indication: Sciatica
     Dosage: 100 MILLIGRAM, TID
     Route: 048
  62. TRAMADOL HYDROCHLORIDE [Concomitant]
     Active Substance: TRAMADOL HYDROCHLORIDE
     Indication: Sciatica
     Dosage: 100 MILLIGRAM, BID
     Route: 048
  63. CALCIUM CARBONATE\CHOLECALCIFEROL [Concomitant]
     Active Substance: CALCIUM CARBONATE\CHOLECALCIFEROL
     Indication: Hypovitaminosis
     Dosage: 500 MILLIGRAM, BID
     Route: 048
  64. Seropram [Concomitant]
     Indication: Depression
     Dosage: 10 MILLIGRAM, QD
     Route: 048
  65. EUPANTOL [Concomitant]
     Active Substance: PANTOPRAZOLE SODIUM
     Indication: Gastrooesophageal reflux disease
     Dosage: 40 MILLIGRAM, BID
     Route: 048
     Dates: end: 201709
  66. ONDANSETRON [Concomitant]
     Active Substance: ONDANSETRON
     Indication: Nausea
     Dosage: 8 MILLIGRAM
     Route: 048
  67. SODIUM BICARBONATE [Concomitant]
     Active Substance: SODIUM BICARBONATE
     Indication: Gastrooesophageal reflux disease
     Dosage: 500 MILLIGRAM, TID
     Route: 048
  68. ESCITALOPRAM OXALATE [Concomitant]
     Active Substance: ESCITALOPRAM OXALATE
     Indication: Depression
     Dosage: 20 MILLIGRAM, QD
     Route: 048
     Dates: start: 20170513
  69. NEFOPAM [Concomitant]
     Active Substance: NEFOPAM
     Indication: Pain prophylaxis
     Dosage: UNK
     Route: 048
     Dates: start: 20170513
  70. ESOMEPRAZOLE [Concomitant]
     Active Substance: ESOMEPRAZOLE
     Indication: Prophylaxis
     Dosage: 40 MILLIGRAM, QD
     Route: 048
  71. TRONOLANE [Concomitant]
     Active Substance: PRAMOXINE HYDROCHLORIDE\ZINC OXIDE
     Indication: Haemorrhoids
     Dosage: UNK UNK, BID
     Route: 061
     Dates: start: 20170513
  72. LOVENOX [Concomitant]
     Active Substance: ENOXAPARIN SODIUM
     Indication: Thrombosis
     Dosage: 0.40 MILLILITER, BID
     Route: 048
     Dates: start: 20170513
  73. PHLOROGLUCINOL [Concomitant]
     Active Substance: PHLOROGLUCINOL
     Indication: Pain prophylaxis
     Dosage: UNK
     Route: 048
     Dates: start: 201706
  74. INNOHEP [Concomitant]
     Active Substance: TINZAPARIN SODIUM
     Indication: Thrombosis prophylaxis
     Dosage: 4500 INTERNATIONAL UNIT, QD
     Route: 058
     Dates: start: 20170916, end: 20170920
  75. INNOHEP [Concomitant]
     Active Substance: TINZAPARIN SODIUM
     Dosage: 0.40 MILLILITER, QD
     Route: 058
     Dates: start: 20181113
  76. FERROUS FUMARATE [Concomitant]
     Active Substance: FERROUS FUMARATE
     Indication: Anaemia prophylaxis
     Dosage: 1 DOSAGE FORM, BID
     Route: 048
     Dates: start: 20170916
  77. OMEPRAZOLE [Concomitant]
     Active Substance: OMEPRAZOLE
     Indication: Gastrooesophageal reflux disease
     Dosage: 20 MILLIGRAM, QD
     Route: 048
     Dates: start: 201709
  78. FOLIC ACID [Concomitant]
     Active Substance: FOLIC ACID
     Indication: Anaemia prophylaxis
     Dosage: 5 MILLIGRAM, QD
     Route: 048
     Dates: start: 20170916
  79. POTASSIUM [Concomitant]
     Active Substance: POTASSIUM
     Indication: Metabolic acidosis
     Dosage: 1 DOSAGE FORM, SINGLE
     Route: 042
     Dates: start: 20180107, end: 20180107
  80. ACUPAN [Concomitant]
     Active Substance: NEFOPAM HYDROCHLORIDE
     Indication: Pancreatitis
     Dosage: UNK
     Route: 042
     Dates: start: 20180406, end: 20180407
  81. ACUPAN [Concomitant]
     Active Substance: NEFOPAM HYDROCHLORIDE
     Indication: Pain
     Dosage: 120 MILLIGRAM
     Route: 042
     Dates: start: 20190823, end: 201908
  82. ACUPAN [Concomitant]
     Active Substance: NEFOPAM HYDROCHLORIDE
     Dosage: UNK
     Route: 065
     Dates: start: 202010, end: 202010
  83. AMIKACIN [Concomitant]
     Active Substance: AMIKACIN
     Indication: Device related infection
     Dosage: UNK
     Route: 042
     Dates: start: 20180424, end: 20180503
  84. AMIKACIN [Concomitant]
     Active Substance: AMIKACIN
     Indication: Venous thrombosis
     Dosage: UNK
     Route: 042
     Dates: start: 20190308, end: 20190312
  85. AMIKACIN [Concomitant]
     Active Substance: AMIKACIN
     Indication: Device related infection
     Dosage: UNK
     Route: 065
     Dates: start: 202005, end: 202005
  86. AMIKACIN [Concomitant]
     Active Substance: AMIKACIN
     Dosage: UNK
     Route: 065
     Dates: start: 202005, end: 202006
  87. AMIKACIN [Concomitant]
     Active Substance: AMIKACIN
     Dosage: UNK
     Route: 065
     Dates: start: 202005, end: 202006
  88. CEFTAZIDIME [Concomitant]
     Active Substance: CEFTAZIDIME
     Indication: Device related infection
     Dosage: 2 MILLIGRAM, TID
     Route: 042
     Dates: start: 20180424, end: 20180507
  89. CIPROFLOXACIN [Concomitant]
     Active Substance: CIPROFLOXACIN
     Indication: Device related infection
     Dosage: 400 MILLIGRAM, TID
     Route: 042
     Dates: start: 20180424, end: 20180507
  90. CIPROFLOXACIN [Concomitant]
     Active Substance: CIPROFLOXACIN
     Indication: Urinary tract infection
     Dosage: 800 MILLIGRAM, QD
     Route: 042
     Dates: start: 20180911, end: 20180918
  91. CIPROFLOXACIN [Concomitant]
     Active Substance: CIPROFLOXACIN
     Dosage: 500 MILLIGRAM, QD
     Route: 042
     Dates: start: 20180919, end: 20180925
  92. DEXTROSE [Concomitant]
     Active Substance: DEXTROSE
     Indication: Hypoglycaemia
     Dosage: UNK
     Route: 042
     Dates: start: 20190727, end: 20190727
  93. PIPERACILLIN SODIUM\TAZOBACTAM SODIUM [Concomitant]
     Active Substance: PIPERACILLIN SODIUM\TAZOBACTAM SODIUM
     Indication: Device related sepsis
     Dosage: UNK
     Route: 065
     Dates: start: 202002, end: 202003
  94. DAPTOMYCIN [Concomitant]
     Active Substance: DAPTOMYCIN
     Indication: Device related sepsis
     Dosage: UNK
     Route: 065
     Dates: start: 202002, end: 202003
  95. ERYTHROMYCIN [Concomitant]
     Active Substance: ERYTHROMYCIN
     Indication: Short-bowel syndrome
     Dosage: UNK
     Route: 065
     Dates: start: 202007
  96. HUMAN RED BLOOD CELL [Concomitant]
     Active Substance: HUMAN RED BLOOD CELL
     Indication: Anaemia
     Dosage: UNK
     Route: 042
     Dates: start: 202007, end: 202007
  97. HUMAN RED BLOOD CELL [Concomitant]
     Active Substance: HUMAN RED BLOOD CELL
     Indication: Anaemia
     Dosage: UNK
     Route: 042
     Dates: start: 20201016, end: 20201019
  98. HUMAN RED BLOOD CELL [Concomitant]
     Active Substance: HUMAN RED BLOOD CELL
     Indication: Pancreatitis acute
     Dosage: UNK
     Route: 042
     Dates: start: 20190823, end: 20190823
  99. ONDANSETRON [Concomitant]
     Active Substance: ONDANSETRON
     Indication: Nausea
     Dosage: 4 MILLIGRAM
     Route: 048
     Dates: start: 20200507
  100. CEFOXITIN [Concomitant]
     Active Substance: CEFOXITIN SODIUM
     Dosage: UNK
     Route: 065
     Dates: start: 202005, end: 202006
  101. VANCOMYCIN [Concomitant]
     Active Substance: VANCOMYCIN
     Indication: Lactic acidosis
     Dosage: UNK
     Route: 048
     Dates: start: 202301, end: 202301
  102. VANCOMYCIN [Concomitant]
     Active Substance: VANCOMYCIN
     Indication: Encephalopathy
  103. RIFAXIMIN [Concomitant]
     Active Substance: RIFAXIMIN
     Indication: Lactic acidosis
     Dosage: 550 MILLIGRAM, BID
     Route: 048
     Dates: start: 202301, end: 202301
  104. RIFAXIMIN [Concomitant]
     Active Substance: RIFAXIMIN
     Indication: Encephalopathy

REACTIONS (2)
  - Lactic acidosis [Not Recovered/Not Resolved]
  - Coma [Recovered/Resolved]

NARRATIVE: CASE EVENT DATE: 20221219
